FAERS Safety Report 6443229-3 (Version None)
Quarter: 2009Q4

REPORT INFORMATION
  Report Type: 
  Country: None (occurrence: None)
  Receive Date: 20091117
  Receipt Date: 20091105
  Transmission Date: 20100525
  Serious: Yes (Death, Hospitalization)
  Sender: FDA-Public Use
  Company Number: US-ELI_LILLY_AND_COMPANY-US200911001773

PATIENT
  Age: 72 Year
  Sex: Male
  Weight: 136 kg

DRUGS (13)
  1. CYMBALTA [Suspect]
     Indication: FEELING OF RELAXATION
     Dosage: 60 MG, EACH EVENING
     Dates: end: 20091019
  2. FENTANYL-100 [Concomitant]
     Indication: NEUROPATHY PERIPHERAL
     Dosage: 50 UG, UNK
     Route: 062
     Dates: start: 20091017, end: 20091020
  3. METOPROLOL [Concomitant]
     Indication: BLOOD PRESSURE
     Dosage: 50 MG, 2/D
     Route: 048
     Dates: start: 20090801, end: 20091019
  4. HYDROCODONE BITARTRATE AND ACETAMINOPHEN [Concomitant]
     Indication: PAIN
     Dosage: 1 G, DAILY (1/D)
     Dates: start: 20091017, end: 20091020
  5. AMBIEN [Concomitant]
     Indication: INSOMNIA
     Dosage: 10 MG, AS NEEDED
     Dates: start: 20090101, end: 20091020
  6. BETAMETHASONE [Concomitant]
     Indication: NEUROPATHY PERIPHERAL
     Dosage: 1 D/F, AS NEEDED
     Dates: start: 20091016, end: 20091016
  7. AMMONIUM LACTATE [Concomitant]
     Indication: NEUROPATHY PERIPHERAL
     Dosage: 400 MG, 2/D
     Route: 061
     Dates: start: 20091019, end: 20091019
  8. UROXATRAL [Concomitant]
     Indication: MICTURITION DISORDER
     Dosage: 10 MG, DAILY (1/D)
     Route: 048
     Dates: end: 20091019
  9. OXYCONTIN [Concomitant]
     Indication: PAIN
     Dosage: 40 MG, AS NEEDED
     Dates: start: 20030101, end: 20091016
  10. NOVOLOG [Concomitant]
     Indication: DIABETES MELLITUS
     Dosage: 15 GBQ, 3/D
     Route: 058
     Dates: start: 20070101, end: 20091019
  11. LANTUS [Concomitant]
     Indication: DIABETES MELLITUS
     Dosage: 25 G, DAILY (1/D)
     Route: 058
     Dates: start: 20070101, end: 20091019
  12. WARFARIN SODIUM [Concomitant]
     Dosage: 6 MG, OTHER
     Dates: start: 20060101, end: 20091019
  13. DIPROLENE [Suspect]
     Dates: end: 20091019

REACTIONS (11)
  - ABNORMAL BEHAVIOUR [None]
  - ANEURYSM [None]
  - BRAIN DEATH [None]
  - COAGULOPATHY [None]
  - COLD SWEAT [None]
  - FALL [None]
  - HAEMORRHAGIC STROKE [None]
  - HYPERTENSION [None]
  - MALAISE [None]
  - OFF LABEL USE [None]
  - RESPIRATORY ARREST [None]
